FAERS Safety Report 7928900-6 (Version None)
Quarter: 2011Q4

REPORT INFORMATION
  Report Type: 
  Country: None (occurrence: None)
  Receive Date: 20111118
  Receipt Date: 20111115
  Transmission Date: 20120403
  Serious: Yes (Other)
  Sender: FDA-Public Use
  Company Number: JP-JNJFOC-20111106596

PATIENT
  Sex: Male

DRUGS (2)
  1. NICORETTE [Suspect]
     Indication: SMOKING CESSATION THERAPY
     Dosage: 10 GUMS DAILY
     Route: 048
     Dates: end: 20111112
  2. ADALAT [Concomitant]
     Indication: HYPERTENSION
     Dosage: INITIATED TWO YEARS AGO
     Route: 048

REACTIONS (3)
  - INCORRECT DRUG ADMINISTRATION DURATION [None]
  - PALPITATIONS [None]
  - DEPENDENCE [None]
